FAERS Safety Report 5508793-7 (Version None)
Quarter: 2007Q4

REPORT INFORMATION
  Report Type: 
  Country: None (occurrence: None)
  Receive Date: 20071107
  Receipt Date: 20071102
  Transmission Date: 20080405
  Serious: Yes (Other)
  Sender: FDA-Public Use
  Company Number: B0494337A

PATIENT

DRUGS (3)
  1. HYCAMTIN [Suspect]
     Route: 042
  2. CPT-11 [Concomitant]
  3. CISPLATIN [Concomitant]
     Route: 065

REACTIONS (1)
  - INTERSTITIAL LUNG DISEASE [None]
